FAERS Safety Report 4500005-6 (Version None)
Quarter: 2004Q4

REPORT INFORMATION
  Report Type: 
  Country: None (occurrence: None)
  Receive Date: 20041112
  Receipt Date: 20041020
  Transmission Date: 20050328
  Serious: Yes (Other)
  Sender: FDA-Public Use
  Company Number: CA-BRISTOL-MYERS SQUIBB COMPANY-12748950

PATIENT
  Age: 78 Year
  Sex: Female

DRUGS (2)
  1. CEFZIL [Suspect]
     Indication: URINARY TRACT INFECTION
     Route: 048
     Dates: start: 20041013, end: 20041020
  2. MACROBID [Concomitant]
     Dates: start: 20041008, end: 20041012

REACTIONS (3)
  - DYSPNOEA [None]
  - ERYTHEMA [None]
  - VASCULITIS [None]
